FAERS Safety Report 9651929 (Version 1)
Quarter: 2013Q4

REPORT INFORMATION
  Report Type: Spontaneous
  Country: US (occurrence: US)
  Receive Date: 20131029
  Receipt Date: 20131029
  Transmission Date: 20140711
  Serious: No
  Sender: FDA-Public Use
  Company Number: US-ENDO PHARMACEUTICALS INC.-AAOS20120001

PATIENT
  Age: 50 Year
  Sex: Female
  Weight: 54.48 kg

DRUGS (1)
  1. ACETIC ACID OTIC SOLUTION 2 PERCENT [Suspect]
     Indication: EAR INFECTION
     Dosage: UNKNOWN
     Route: 001
     Dates: start: 20120308, end: 20120309

REACTIONS (1)
  - Dizziness [Recovered/Resolved]
